FAERS Safety Report 5396683-2 (Version None)
Quarter: 2007Q3

REPORT INFORMATION
  Report Type: 
  Country: None (occurrence: None)
  Receive Date: 20070725
  Receipt Date: 20070720
  Transmission Date: 20080115
  Serious: Yes (Disabling, Other)
  Sender: FDA-Public Use
  Company Number: GB-MERCK-0606GBR00104

PATIENT
  Age: 25 Year
  Sex: Male

DRUGS (5)
  1. DECADRON [Suspect]
     Indication: TESTIS CANCER
     Route: 048
  2. DECADRON [Suspect]
     Route: 048
  3. BLEOMYCIN [Concomitant]
     Indication: TESTIS CANCER
     Route: 065
  4. CISPLATIN [Concomitant]
     Indication: TESTIS CANCER
     Route: 065
  5. ETOPOSIDE [Concomitant]
     Indication: TESTIS CANCER
     Route: 065

REACTIONS (3)
  - DRUG INTERACTION [None]
  - GROIN PAIN [None]
  - OSTEONECROSIS [None]
